FAERS Safety Report 14826494 (Version 1)
Quarter: 2018Q2

REPORT INFORMATION
  Report Type: Spontaneous
  Country: US (occurrence: US)
  Receive Date: 20180430
  Receipt Date: 20180430
  Transmission Date: 20180711
  Serious: No
  Sender: FDA-Public Use
  Company Number: US-TEVA-2018-US-872471

PATIENT
  Sex: Female
  Weight: 139 kg

DRUGS (1)
  1. ACTONEL [Suspect]
     Active Substance: RISEDRONATE SODIUM
     Indication: PRODUCT USED FOR UNKNOWN INDICATION

REACTIONS (2)
  - Malaise [Unknown]
  - Dizziness [Unknown]
